FAERS Safety Report 18707956 (Version 1)
Quarter: 2021Q1

REPORT INFORMATION
  Report Type: Spontaneous
  Country: US (occurrence: US)
  Receive Date: 20210106
  Receipt Date: 20210106
  Transmission Date: 20210419
  Serious: No
  Sender: FDA-Public Use
  Company Number: US-TAKEDA-2021TUS000311

PATIENT

DRUGS (2)
  1. COLCRYS [Suspect]
     Active Substance: COLCHICINE
     Indication: DISCOMFORT
     Dosage: UNK
     Route: 065
  2. COLCRYS [Suspect]
     Active Substance: COLCHICINE
     Indication: ATRIAL FIBRILLATION

REACTIONS (2)
  - No adverse event [Unknown]
  - Off label use [Unknown]
